FAERS Safety Report 9031214 (Version 1)
Quarter: 2013Q1

REPORT INFORMATION
  Report Type: Spontaneous
  Country: US (occurrence: US)
  Receive Date: 20130123
  Receipt Date: 20130123
  Transmission Date: 20140127
  Serious: No
  Sender: FDA-Public Use
  Company Number: US-B.I. PHARMACEUTICALS,INC./RIDGEFIELD-2013-BI-01403BP

PATIENT
  Age: 73 Year
  Sex: Male

DRUGS (4)
  1. ZANTAC COOL MINT (TABLETS) [Suspect]
     Indication: DYSPEPSIA
     Dosage: 300 MG
     Route: 048
     Dates: start: 201212
  2. PREDNISONE [Concomitant]
     Indication: CHRONIC OBSTRUCTIVE PULMONARY DISEASE
  3. LEXAPRO [Concomitant]
     Indication: DEPRESSION
  4. XANAX [Concomitant]
     Indication: ANXIETY

REACTIONS (1)
  - Anxiety [Not Recovered/Not Resolved]
